FAERS Safety Report 20187698 (Version 1)
Quarter: 2021Q4

REPORT INFORMATION
  Report Type: Spontaneous
  Country: US (occurrence: US)
  Receive Date: 20211215
  Receipt Date: 20211215
  Transmission Date: 20220303
  Serious: No
  Sender: FDA-Public Use
  Company Number: US-JNJFOC-20211214072

PATIENT
  Age: 42 Year
  Sex: Female
  Weight: 79.904 kg

DRUGS (1)
  1. ORTHO TRI CYCLEN [Suspect]
     Active Substance: ETHINYL ESTRADIOL\NORGESTIMATE
     Indication: Premenstrual syndrome
     Route: 065

REACTIONS (11)
  - Weight decreased [Unknown]
  - Quality of life decreased [Unknown]
  - Affective disorder [Unknown]
  - Pain [Unknown]
  - Weight increased [Unknown]
  - Abdominal distension [Unknown]
  - Drug hypersensitivity [Unknown]
  - General physical health deterioration [Unknown]
  - Gastric disorder [Unknown]
  - Premenstrual syndrome [Unknown]
  - Liver disorder [Unknown]
